FAERS Safety Report 18267220 (Version 1)
Quarter: 2020Q3

REPORT INFORMATION
  Report Type: Spontaneous
  Country: US (occurrence: US)
  Receive Date: 20200915
  Receipt Date: 20200915
  Transmission Date: 20201103
  Serious: Yes (Other)
  Sender: FDA-Public Use
  Company Number: None

PATIENT
  Age: 43 Year
  Sex: Male
  Weight: 89.3 kg

DRUGS (10)
  1. REMDESIVIR. [Suspect]
     Active Substance: REMDESIVIR
     Indication: COVID-19
     Dosage: ?          OTHER FREQUENCY:1X ONLY;?
     Route: 042
     Dates: start: 20200913, end: 20200913
  2. REMDESIVIR. [Suspect]
     Active Substance: REMDESIVIR
     Indication: COVID-19
     Route: 042
     Dates: start: 20200914, end: 20200914
  3. HYDROCORTISONE?PRAMOXINE [Concomitant]
     Dates: start: 20200914
  4. LISINOPRIL. [Concomitant]
     Active Substance: LISINOPRIL
     Dates: start: 20200914
  5. CALCITROL [Concomitant]
     Dates: start: 20200912
  6. PANTOPRAZOLE [Concomitant]
     Active Substance: PANTOPRAZOLE
     Dates: start: 20200912
  7. DEXAMETHASONE. [Concomitant]
     Active Substance: DEXAMETHASONE
     Dates: start: 20200913, end: 20200914
  8. HEPARIN SUBCUTANEOUS [Concomitant]
     Dates: start: 20200912
  9. TORSEMIDE. [Concomitant]
     Active Substance: TORSEMIDE
     Dates: start: 20200912
  10. POTASSIUM BICARB?CITRIC ACID [Concomitant]
     Dates: start: 20200914, end: 20200914

REACTIONS (3)
  - Blood potassium decreased [None]
  - Electrocardiogram QT shortened [None]
  - Electrocardiogram QT prolonged [None]

NARRATIVE: CASE EVENT DATE: 20200913
